FAERS Safety Report 20834054 (Version 2)
Quarter: 2022Q2

REPORT INFORMATION
  Report Type: Report from Study
  Country: CN (occurrence: CN)
  Receive Date: 20220516
  Receipt Date: 20220613
  Transmission Date: 20220721
  Serious: Yes (Life-Threatening)
  Sender: FDA-Public Use
  Company Number: CN-PFIZER INC-202200706480

PATIENT

DRUGS (10)
  1. METHOTREXATE SODIUM [Suspect]
     Active Substance: METHOTREXATE SODIUM
     Indication: T-cell lymphoma
     Dosage: 3 G/M2, ON DAY 1
  2. METHOTREXATE SODIUM [Suspect]
     Active Substance: METHOTREXATE SODIUM
     Indication: Natural killer-cell lymphoblastic lymphoma
  3. ETOPOSIDE [Suspect]
     Active Substance: ETOPOSIDE
     Indication: T-cell lymphoma
     Dosage: 100 MG/M2 DAY 2-4
  4. ETOPOSIDE [Suspect]
     Active Substance: ETOPOSIDE
     Indication: Natural killer-cell lymphoblastic lymphoma
  5. DEXAMETHASONE [Suspect]
     Active Substance: DEXAMETHASONE
     Indication: T-cell lymphoma
     Dosage: 40 MG, DAY 1-4
  6. DEXAMETHASONE [Suspect]
     Active Substance: DEXAMETHASONE
     Indication: Natural killer-cell lymphoblastic lymphoma
  7. PEGASPARGASE [Suspect]
     Active Substance: PEGASPARGASE
     Indication: T-cell lymphoma
     Dosage: 2500 U/M2 (UNCAPPED) ON DAY 4
  8. PEGASPARGASE [Suspect]
     Active Substance: PEGASPARGASE
     Indication: Natural killer-cell lymphoblastic lymphoma
  9. LEUCOVORIN SODIUM [Concomitant]
     Active Substance: LEUCOVORIN SODIUM
     Indication: T-cell lymphoma
     Dosage: 15 MG/M2
  10. LEUCOVORIN SODIUM [Concomitant]
     Active Substance: LEUCOVORIN SODIUM
     Indication: Natural killer-cell lymphoblastic lymphoma

REACTIONS (1)
  - Thrombocytopenia [Unknown]
